FAERS Safety Report 9444905 (Version 2)
Quarter: 2013Q3

REPORT INFORMATION
  Report Type: Spontaneous
  Country: US (occurrence: US)
  Receive Date: 20130807
  Receipt Date: 20130826
  Transmission Date: 20140515
  Serious: No
  Sender: FDA-Public Use
  Company Number: US-009507513-1308USA003050

PATIENT
  Age: 54 Year
  Sex: Male
  Weight: 113.38 kg

DRUGS (2)
  1. MIRALAX [Suspect]
     Indication: FUNCTIONAL GASTROINTESTINAL DISORDER
     Dosage: 17 G, QD
     Route: 048
     Dates: start: 200807
  2. MIRALAX [Suspect]
     Indication: MEDICAL OBSERVATION

REACTIONS (2)
  - Incorrect drug administration duration [Unknown]
  - Product contamination physical [Unknown]
